FAERS Safety Report 22164896 (Version 1)
Quarter: 2023Q2

REPORT INFORMATION
  Report Type: Report from Study
  Country: BR (occurrence: BR)
  Receive Date: 20230403
  Receipt Date: 20230403
  Transmission Date: 20230722
  Serious: Yes (Hospitalization, Other)
  Sender: FDA-Public Use
  Company Number: BR-JNJFOC-20220635613

PATIENT
  Age: 27 Year
  Sex: Female
  Weight: 58 kg

DRUGS (2)
  1. INFLIXIMAB [Suspect]
     Active Substance: INFLIXIMAB
     Indication: Crohn^s disease
     Route: 041
     Dates: start: 20201119
  2. REMICADE [Suspect]
     Active Substance: INFLIXIMAB
     Indication: Crohn^s disease
     Dosage: TREATMENT END DATE: JUNE OR JUL-2021
     Route: 041
     Dates: start: 20201119, end: 2021

REACTIONS (5)
  - Infection [Unknown]
  - Cervix injury [Unknown]
  - Liver abscess [Unknown]
  - Inflammation [Unknown]
  - Blood pressure decreased [Unknown]

NARRATIVE: CASE EVENT DATE: 20201201
